FAERS Safety Report 19515635 (Version 1)
Quarter: 2021Q3

REPORT INFORMATION
  Report Type: Spontaneous
  Country: FR (occurrence: FR)
  Receive Date: 20210709
  Receipt Date: 20210709
  Transmission Date: 20211014
  Serious: Yes (Hospitalization)
  Sender: FDA-Public Use
  Company Number: FR-ELI_LILLY_AND_COMPANY-FR202106014846

PATIENT
  Age: 62 Year
  Sex: Male
  Weight: 119 kg

DRUGS (2)
  1. CISPLATINE ACCORD [Suspect]
     Active Substance: CISPLATIN
     Indication: BLADDER CANCER
     Dosage: 1000 MG/M2, DAILY
     Route: 041
     Dates: start: 20210405, end: 20210405
  2. GEMZAR [Suspect]
     Active Substance: GEMCITABINE HYDROCHLORIDE
     Indication: BLADDER CANCER
     Dosage: 70 MG/M2, CYCLICAL
     Route: 041
     Dates: start: 20210405, end: 20210511

REACTIONS (3)
  - Seizure [Recovered/Resolved]
  - Hypomagnesaemia [Recovered/Resolved]
  - Acute kidney injury [Not Recovered/Not Resolved]

NARRATIVE: CASE EVENT DATE: 20210608
